FAERS Safety Report 10207702 (Version 3)
Quarter: 2014Q2

REPORT INFORMATION
  Report Type: Spontaneous
  Country: US (occurrence: US)
  Receive Date: 20140530
  Receipt Date: 20140626
  Transmission Date: 20141212
  Serious: Yes (Death, Hospitalization)
  Sender: FDA-Public Use
  Company Number: US-B.I. PHARMACEUTICALS,INC./RIDGEFIELD-2014-BI-24048BP

PATIENT
  Age: 85 Year
  Sex: Female
  Weight: 74.84 kg

DRUGS (21)
  1. PRADAXA [Suspect]
     Indication: CEREBROVASCULAR ACCIDENT PROPHYLAXIS
     Dosage: 300 MG
     Route: 048
     Dates: start: 201210, end: 20140523
  2. PRADAXA [Suspect]
     Indication: ATRIAL FIBRILLATION
  3. ADVAIR [Concomitant]
     Indication: ASTHMA
     Dosage: DOSE PER APPLICATION:250/50MCG; DAILY DOSE: 250/50MCG
     Route: 065
  4. ONGLYZA [Concomitant]
     Indication: TYPE 2 DIABETES MELLITUS
     Dosage: 5 MG
     Route: 048
  5. BENICAR [Concomitant]
     Indication: HYPERTENSION
     Dosage: 20 MG
     Route: 065
  6. LASIX [Concomitant]
     Indication: CARDIAC FAILURE CONGESTIVE
     Dosage: 20 MG
     Route: 048
  7. LASIX [Concomitant]
     Indication: HYPERTENSION
     Dosage: 40 MG
     Route: 048
  8. LASIX [Concomitant]
     Indication: LOCAL SWELLING
  9. PROTONIX [Concomitant]
     Route: 065
  10. CARDIZEM CD [Concomitant]
     Indication: ATRIAL FIBRILLATION
     Dosage: 180 MG
     Route: 048
  11. CARDIZEM CD [Concomitant]
     Indication: HYPERTENSION
  12. SINGULAIR [Concomitant]
     Indication: ASTHMA
     Dosage: 10 MG
     Route: 048
  13. POTASSIUM [Concomitant]
     Indication: MINERAL SUPPLEMENTATION
     Dosage: 20 MEQ
     Route: 065
  14. PRAVASATIN [Concomitant]
     Indication: HYPERLIPIDAEMIA
     Dosage: 40 MG
     Route: 048
  15. PRAVASATIN [Concomitant]
     Indication: HYPERCHOLESTEROLAEMIA
  16. SPIRONOLACTONE [Concomitant]
     Indication: CARDIAC FAILURE CONGESTIVE
     Dosage: DOSE PER APPLICATION: 25MG, DAILY DOSE: 12.5
     Route: 048
  17. SPIRONOLACTONE [Concomitant]
     Indication: CARDIOMYOPATHY
  18. SPIRONOLACTONE [Concomitant]
     Indication: HYPERTENSION
  19. SPIRONOLACTONE [Concomitant]
     Indication: BLOOD POTASSIUM DECREASED
  20. TYLENOL [Concomitant]
     Indication: OSTEOARTHRITIS
     Route: 065
  21. ATROVENT HFA [Concomitant]
     Indication: ASTHMA
     Route: 065

REACTIONS (1)
  - Small intestinal obstruction [Fatal]
